FAERS Safety Report 8948866 (Version 2)
Quarter: 2013Q1

REPORT INFORMATION
  Report Type: Spontaneous
  Country: US (occurrence: US)
  Receive Date: 20121206
  Receipt Date: 20130306
  Transmission Date: 20140127
  Serious: No
  Sender: FDA-Public Use
  Company Number: US-BIOGENIDEC-2012BI056689

PATIENT
  Age: 30 None
  Sex: Male

DRUGS (1)
  1. TYSABRI [Suspect]
     Indication: MULTIPLE SCLEROSIS
     Route: 042
     Dates: start: 20120417

REACTIONS (10)
  - Fall [Recovered/Resolved]
  - Arthropathy [Recovered/Resolved]
  - Hypoaesthesia [Unknown]
  - Pain [Recovered/Resolved]
  - Gait disturbance [Not Recovered/Not Resolved]
  - Musculoskeletal stiffness [Recovered/Resolved]
  - Abasia [Recovered/Resolved]
  - Spinal column injury [Unknown]
  - Multiple sclerosis relapse [Recovered/Resolved]
  - Nail hypertrophy [Not Recovered/Not Resolved]
